FAERS Safety Report 5945619-1 (Version None)
Quarter: 2008Q4

REPORT INFORMATION
  Report Type: 
  Country: None (occurrence: None)
  Receive Date: 20081107
  Receipt Date: 20081028
  Transmission Date: 20090506
  Serious: Yes (Other)
  Sender: FDA-Public Use
  Company Number: US-PFIZER INC-2008091445

PATIENT
  Sex: Female
  Weight: 70.3 kg

DRUGS (6)
  1. LYRICA [Suspect]
     Indication: FIBROMYALGIA
     Dates: start: 20080101, end: 20080101
  2. PAXIL [Concomitant]
  3. PERCOCET [Concomitant]
  4. TOPAMAX [Concomitant]
  5. VITAMIN B12 FOR INJECTION [Concomitant]
  6. VALIUM [Concomitant]

REACTIONS (7)
  - DRUG HYPERSENSITIVITY [None]
  - DYSARTHRIA [None]
  - EUPHORIC MOOD [None]
  - FIBROMYALGIA [None]
  - IMPAIRED DRIVING ABILITY [None]
  - MUSCULOSKELETAL STIFFNESS [None]
  - PAIN [None]
